FAERS Safety Report 19856208 (Version 1)
Quarter: 2021Q3

REPORT INFORMATION
  Report Type: Spontaneous
  Country: GB (occurrence: GB)
  Receive Date: 20210920
  Receipt Date: 20210920
  Transmission Date: 20211014
  Serious: Yes (Other)
  Sender: FDA-Public Use
  Company Number: GB-TEVA-2021-GB-1953955

PATIENT
  Age: 45 Year
  Sex: Female
  Weight: 90 kg

DRUGS (13)
  1. CETIRIZINE [Concomitant]
     Active Substance: CETIRIZINE HYDROCHLORIDE
     Dosage: 1 DOSAGE FORMS DAILY;
     Dates: start: 20210602
  2. CO?DYDRAMOL [Concomitant]
     Active Substance: ACETAMINOPHEN\DIHYDROCODEINE
     Dosage: TAKE 1 OR 2TAB
     Dates: start: 20210726
  3. HYDROXYZINE [Concomitant]
     Active Substance: HYDROXYZINE HYDROCHLORIDE
     Dosage: 1 DOSAGE FORMS DAILY; EVERY NIGHT
     Dates: start: 20200522
  4. SOPROBEC [Concomitant]
     Dosage: 4 DOSAGE FORMS DAILY; INCREASE TO 4 PUFFS
     Route: 055
     Dates: start: 20210114
  5. DIAZEPAM. [Suspect]
     Active Substance: DIAZEPAM
     Dates: start: 20210906
  6. DOXYCYCLINE. [Concomitant]
     Active Substance: DOXYCYCLINE
     Dosage: 2 DOSAGE FORMS DAILY;
     Dates: start: 20210618, end: 20210625
  7. FENBID [Concomitant]
     Active Substance: IBUPROFEN
     Dates: start: 20200110
  8. FLUCLOXACILLIN [Concomitant]
     Active Substance: FLUCLOXACILLIN
     Dosage: 4 DOSAGE FORMS DAILY;
     Dates: start: 20210625, end: 20210702
  9. NITROFURANTOIN. [Concomitant]
     Active Substance: NITROFURANTOIN
     Dosage: 2 DOSAGE FORMS DAILY;
     Dates: start: 20210614, end: 20210621
  10. TRIMETHOPRIM. [Concomitant]
     Active Substance: TRIMETHOPRIM
     Dosage: 2 DOSAGE FORMS DAILY;
     Dates: start: 20210706, end: 20210709
  11. AMITRIPTYLINE HYDROCHLORIDE. [Concomitant]
     Active Substance: AMITRIPTYLINE HYDROCHLORIDE
     Dosage: 1 DOSAGE FORMS DAILY; AT NIGHT
     Dates: start: 20210602, end: 20210625
  12. VENTOLIN [Concomitant]
     Active Substance: ALBUTEROL SULFATE
     Dosage: INHALE 1?2 DOSES IF NEEDED
     Dates: start: 20200522
  13. EMOLLIENT BASE [Concomitant]
     Dosage: USE AS DIRECTED
     Dates: start: 20191218

REACTIONS (1)
  - Suicidal ideation [Recovered/Resolved]

NARRATIVE: CASE EVENT DATE: 20210906
